FAERS Safety Report 6158080-1 (Version None)
Quarter: 2009Q2

REPORT INFORMATION
  Report Type: 
  Country: None (occurrence: None)
  Receive Date: 20090417
  Receipt Date: 20090414
  Transmission Date: 20091009
  Serious: Yes (Disabling)
  Sender: FDA-Public Use
  Company Number: JP-ASTRAZENECA-2009AP02598

PATIENT
  Age: 44 Year
  Sex: Male

DRUGS (3)
  1. OMEPRAL [Suspect]
     Indication: REFLUX OESOPHAGITIS
     Route: 048
     Dates: start: 20081110, end: 20090413
  2. GASLON [Concomitant]
     Route: 048
     Dates: start: 20090210
  3. ALOSITOL [Concomitant]
     Route: 048
     Dates: start: 20080701

REACTIONS (1)
  - VISUAL IMPAIRMENT [None]
